FAERS Safety Report 4442600-9 (Version None)
Quarter: 2004Q3

REPORT INFORMATION
  Report Type: 
  Country: None (occurrence: None)
  Receive Date: 20040903
  Receipt Date: 20040719
  Transmission Date: 20050211
  Serious: Yes (Other)
  Sender: FDA-Public Use
  Company Number: 2004UW15135

PATIENT
  Age: 42 Year
  Sex: Female
  Weight: 79.3795 kg

DRUGS (10)
  1. CRESTOR [Suspect]
     Indication: HYPERCHOLESTEROLAEMIA
     Dosage: 5 MG QD PO
     Route: 048
     Dates: start: 20040615
  2. ZETIA [Concomitant]
  3. PROTONIX [Concomitant]
  4. SEROQUEL [Concomitant]
  5. LEXAPRO [Concomitant]
  6. MORPHINE SULFATE [Concomitant]
  7. SYNTHROID [Concomitant]
  8. CLARINEX [Concomitant]
  9. ALLEGRA [Concomitant]
  10. MAALOX [Concomitant]

REACTIONS (3)
  - CHILLS [None]
  - HYPERHIDROSIS [None]
  - MYALGIA [None]
